FAERS Safety Report 5016847-7 (Version None)
Quarter: 2006Q2

REPORT INFORMATION
  Report Type: 
  Country: None (occurrence: None)
  Receive Date: 20060526
  Receipt Date: 20060517
  Transmission Date: 20061013
  Serious: Yes (Other)
  Sender: FDA-Public Use
  Company Number: 2006-04-1047

PATIENT
  Age: 30 Year
  Sex: Male

DRUGS (5)
  1. PEG-INTERFERON ALFA-2B REDIPEN [Suspect]
     Indication: HEPATITIS C
     Dosage: 150 UG SUBCUTANEOUS
     Route: 058
     Dates: start: 20060216, end: 20060413
  2. RIBAVIRIN [Suspect]
     Indication: HEPATITIS C
     Dosage: ORAL
     Route: 048
     Dates: start: 20060216, end: 20060413
  3. METHADONE [Concomitant]
  4. LORAZEPAM [Concomitant]
  5. TRAZODONE HCL [Concomitant]

REACTIONS (5)
  - AMNESIA [None]
  - ANXIETY [None]
  - DRUG DOSE OMISSION [None]
  - NAUSEA [None]
  - PHARMACEUTICAL PRODUCT COMPLAINT [None]
